FAERS Safety Report 4762171-7 (Version None)
Quarter: 2005Q3

REPORT INFORMATION
  Report Type: 
  Country: None (occurrence: None)
  Receive Date: 20050906
  Receipt Date: 20050906
  Transmission Date: 20060218
  Serious: Yes (Life-Threatening, Hospitalization)
  Sender: FDA-Public Use
  Company Number: None

PATIENT
  Sex: Female
  Weight: 61.4 kg

DRUGS (1)
  1. EFFEXOR XR [Suspect]
     Indication: DEPRESSION
     Dosage: 300 MG   QD   PO
     Route: 048
     Dates: start: 20050615, end: 20050901

REACTIONS (8)
  - CONTUSION [None]
  - ENCEPHALOPATHY [None]
  - HEPATIC FAILURE [None]
  - HYPOGLYCAEMIA [None]
  - INJURY [None]
  - MALAISE [None]
  - RENAL FAILURE [None]
  - SPEECH DISORDER [None]
